FAERS Safety Report 6533970-6 (Version None)
Quarter: 2010Q1

REPORT INFORMATION
  Report Type: 
  Country: None (occurrence: None)
  Receive Date: 20100112
  Receipt Date: 20100104
  Transmission Date: 20100710
  Serious: Yes (Hospitalization)
  Sender: FDA-Public Use
  Company Number: FR-ELI_LILLY_AND_COMPANY-FR201001000362

PATIENT
  Sex: Female
  Weight: 73 kg

DRUGS (10)
  1. GEMCITABINE HCL [Suspect]
     Indication: CERVIX CARCINOMA
     Dosage: 961 MG, DAYS 1, 8,15, 22 + 28 OF A 5 WEEK CYCLE
     Route: 042
     Dates: start: 20080118, end: 20080222
  2. GEMCITABINE HCL [Suspect]
     Dosage: 4750 MG, DAYS 1 + 8
     Route: 042
     Dates: start: 20080416, end: 20080514
  3. CISPLATIN [Suspect]
     Indication: CERVIX CARCINOMA
     Dosage: 308 MG, ON DAYS 1, 8,15, 22, 28 OF A 5 WEEK CYCLE
     Route: 042
     Dates: start: 20080118, end: 20080222
  4. CISPLATIN [Suspect]
     Dosage: 280 MG, DAY 1
     Route: 042
     Dates: start: 20080416, end: 20080514
  5. RADIATION [Suspect]
     Indication: CERVIX CARCINOMA
     Dosage: 1.8 GY, DAILY (1/D) FIVE DAYS A WEEK, FOR 5 WEEKS (TOTAL DOSE=45GY)
     Dates: start: 20080118, end: 20080225
  6. RADIATION [Suspect]
     Dosage: 25 GY, UNK
     Dates: start: 20080303, end: 20080307
  7. ISOPTIN [Concomitant]
     Dosage: 100 MG, DAILY (1/D)
     Dates: start: 19980101
  8. SEROPRAM [Concomitant]
     Dosage: 100 MG, DAILY (1/D)
     Dates: start: 20010101
  9. IMOVANE [Concomitant]
     Dosage: 1 D/F, DAILY (1/D)
     Dates: start: 19930101
  10. VENTOLIN [Concomitant]
     Dates: start: 20070101

REACTIONS (1)
  - CYSTITIS HAEMORRHAGIC [None]
